FAERS Safety Report 10777905 (Version 1)
Quarter: 2015Q1

REPORT INFORMATION
  Report Type: Spontaneous
  Country: FR (occurrence: FR)
  Receive Date: 20150209
  Receipt Date: 20150209
  Transmission Date: 20150721
  Serious: Yes (Other)
  Sender: FDA-Public Use
  Company Number: FR-PFIZER INC-2015044538

PATIENT
  Age: 53 Year
  Sex: Female

DRUGS (6)
  1. HEPARIN [Concomitant]
     Active Substance: HEPARIN SODIUM
  2. CYMEVENE [Concomitant]
     Active Substance: GANCICLOVIR
  3. PRODILANTIN [Suspect]
     Active Substance: FOSPHENYTOIN SODIUM
     Indication: SEIZURE
     Dosage: 1000 MG, DAILY
     Route: 042
     Dates: start: 201410, end: 201501
  4. CICLOSPORIN [Concomitant]
     Active Substance: CYCLOSPORINE
  5. CEFEPIME DIHYDROCHLORIDE [Concomitant]
  6. CELLCEPT [Concomitant]
     Active Substance: MYCOPHENOLATE MOFETIL\MYCOPHENOLATE MOFETIL HYDROCHLORIDE

REACTIONS (6)
  - Anticonvulsant drug level above therapeutic [Recovered/Resolved]
  - Prerenal failure [Recovered/Resolved]
  - Depressed level of consciousness [Recovered/Resolved]
  - Condition aggravated [Recovered/Resolved]
  - Somnolence [Recovered/Resolved]
  - Blood creatinine increased [Recovered/Resolved]

NARRATIVE: CASE EVENT DATE: 20141219
